FAERS Safety Report 11830023 (Version 1)
Quarter: 2015Q4

REPORT INFORMATION
  Report Type: Spontaneous
  Country: BE (occurrence: BE)
  Receive Date: 20151213
  Receipt Date: 20151213
  Transmission Date: 20160305
  Serious: No
  Sender: FDA-Public Use
  Company Number: PHHY2015BE162376

PATIENT

DRUGS (1)
  1. LAMISIL [Suspect]
     Active Substance: TERBINAFINE HYDROCHLORIDE
     Indication: FUNGAL INFECTION
     Dosage: UNK
     Route: 048
     Dates: start: 201506

REACTIONS (2)
  - Incorrect drug administration duration [Unknown]
  - Drug ineffective [Unknown]
